FAERS Safety Report 14335421 (Version 1)
Quarter: 2017Q4

REPORT INFORMATION
  Report Type: Spontaneous
  Country: US (occurrence: US)
  Receive Date: 20171229
  Receipt Date: 20171229
  Transmission Date: 20180321
  Serious: No
  Sender: FDA-Public Use
  Company Number: US-009507513-1712USA000061

PATIENT
  Sex: Female

DRUGS (7)
  1. MEGESTROL ACETATE. [Concomitant]
     Active Substance: MEGESTROL ACETATE
  2. SYLATRON [Suspect]
     Active Substance: PEGINTERFERON ALFA-2B
     Indication: LEUKAEMIA
     Dosage: 200 MICROGRAM, QW
     Route: 058
  3. CLOBETASOL PROPIONATE. [Concomitant]
     Active Substance: CLOBETASOL PROPIONATE
  4. CYMBALTA [Concomitant]
     Active Substance: DULOXETINE HYDROCHLORIDE
  5. LEVOTHYROXINE SODIUM. [Concomitant]
     Active Substance: LEVOTHYROXINE SODIUM
  6. ZIDOVUDINE. [Concomitant]
     Active Substance: ZIDOVUDINE
  7. MARINOL [Concomitant]
     Active Substance: DRONABINOL

REACTIONS (2)
  - Pain [Not Recovered/Not Resolved]
  - Depression [Not Recovered/Not Resolved]
